FAERS Safety Report 5902094-0 (Version None)
Quarter: 2008Q3

REPORT INFORMATION
  Report Type: 
  Country: None (occurrence: None)
  Receive Date: 20080929
  Receipt Date: 20080917
  Transmission Date: 20090109
  Serious: Yes (Other)
  Sender: FDA-Public Use
  Company Number: US-PFIZER INC-2008069212

PATIENT
  Weight: 75 kg

DRUGS (6)
  1. CHANTIX [Suspect]
     Indication: SMOKING CESSATION THERAPY
     Route: 048
  2. CHOLESTEROL [Concomitant]
  3. LUNESTA [Concomitant]
  4. AMBIEN [Concomitant]
  5. ALL OTHER THERAPEUTIC PRODUCTS [Concomitant]
  6. HYDROCODONE BITARTRATE [Concomitant]

REACTIONS (2)
  - APATHY [None]
  - MEMORY IMPAIRMENT [None]
